FAERS Safety Report 16909582 (Version 3)
Quarter: 2019Q4

REPORT INFORMATION
  Report Type: Spontaneous
  Country: US (occurrence: US)
  Receive Date: 20191011
  Receipt Date: 20191206
  Transmission Date: 20200122
  Serious: Yes (Other)
  Sender: FDA-Public Use
  Company Number: US-VERTEX PHARMACEUTICALS-2019-009633

PATIENT
  Sex: Female

DRUGS (4)
  1. SYMDEKO [Suspect]
     Active Substance: IVACAFTOR\TEZACAFTOR
     Indication: CYSTIC FIBROSIS
     Dosage: 100 MG TEZACAFTOR/ 150 MG IVACAFTOR AM; 150 MG IVACAFTOR PM
     Route: 048
     Dates: start: 201909
  2. CAYSTON [Concomitant]
     Active Substance: AZTREONAM
  3. SYMDEKO [Suspect]
     Active Substance: IVACAFTOR\TEZACAFTOR
     Dosage: REDUCED DOSE (3 TIMES A WEEK )
     Route: 048
     Dates: start: 201911
  4. SYMDEKO [Suspect]
     Active Substance: IVACAFTOR\TEZACAFTOR
     Dosage: REDUCED DOSE (2 TIMES PER WEEK)
     Route: 048
     Dates: start: 201909, end: 20190928

REACTIONS (31)
  - Fatigue [Unknown]
  - Pain [Not Recovered/Not Resolved]
  - Feelings of worthlessness [Unknown]
  - Confusional state [Not Recovered/Not Resolved]
  - Asthenia [Not Recovered/Not Resolved]
  - Headache [Unknown]
  - Wheezing [Unknown]
  - Vision blurred [Not Recovered/Not Resolved]
  - Decreased appetite [Not Recovered/Not Resolved]
  - Haemoptysis [Recovered/Resolved]
  - Influenza [Unknown]
  - Panic attack [Unknown]
  - Feeling cold [Unknown]
  - Formication [Unknown]
  - Muscle twitching [Unknown]
  - Dyspnoea [Recovered/Resolved]
  - Paraesthesia [Unknown]
  - Nausea [Unknown]
  - Mental disorder [Unknown]
  - Restlessness [Not Recovered/Not Resolved]
  - Infective pulmonary exacerbation of cystic fibrosis [Unknown]
  - Sputum increased [Unknown]
  - Hypersomnia [Not Recovered/Not Resolved]
  - Cough [Unknown]
  - Chest discomfort [Unknown]
  - Dizziness [Unknown]
  - Oxygen saturation decreased [Recovering/Resolving]
  - Hallucination, visual [Unknown]
  - Forced expiratory volume decreased [Not Recovered/Not Resolved]
  - Sepsis [Unknown]
  - Vomiting [Not Recovered/Not Resolved]

NARRATIVE: CASE EVENT DATE: 2019
